FAERS Safety Report 8546848-3 (Version None)
Quarter: 2012Q3

REPORT INFORMATION
  Report Type: 
  Country: None (occurrence: None)
  Receive Date: 20120727
  Receipt Date: 20120720
  Transmission Date: 20120928
  Serious: Yes (Other)
  Sender: FDA-Public Use
  Company Number: US-ASTRAZENECA-2010SE18948

PATIENT
  Age: 81 Year
  Sex: Female

DRUGS (2)
  1. ATACAND [Suspect]
     Route: 048
  2. NEXIUM [Suspect]
     Route: 048

REACTIONS (4)
  - RETINAL DEGENERATION [None]
  - OPEN FRACTURE [None]
  - FALL [None]
  - ASTHMA [None]
